FAERS Safety Report 9224184 (Version 1)
Quarter: 2013Q1

REPORT INFORMATION
  Report Type: Spontaneous
  Country: US (occurrence: None)
  Receive Date: 20120914
  Receipt Date: 20120914
  Transmission Date: 20140127
  Serious: Yes (Other)
  Sender: FDA-Public Use
  Company Number: JPI-P-019615

PATIENT
  Age: 26 Year
  Sex: Female
  Weight: 111.13 kg

DRUGS (2)
  1. XYREM [Suspect]
     Indication: CATAPLEXY
     Route: 048
     Dates: start: 20120130, end: 20120131
  2. UNSPECIFIED MIGRAINE MEDICATION [Concomitant]

REACTIONS (2)
  - Sleep apnoea syndrome [None]
  - Sleep disorder [None]
